FAERS Safety Report 9794271 (Version 2)
Quarter: 2014Q2

REPORT INFORMATION
  Report Type: Spontaneous
  Country: US (occurrence: US)
  Receive Date: 20140102
  Receipt Date: 20140509
  Transmission Date: 20141212
  Serious: Yes (Death, Other)
  Sender: FDA-Public Use
  Company Number: US-PFIZER INC-2013374620

PATIENT
  Age: 58 Year
  Sex: Female

DRUGS (1)
  1. REVATIO [Suspect]
     Dosage: 20 MG, UNK
     Dates: start: 20130711

REACTIONS (4)
  - Death [Fatal]
  - Uterine cancer [Unknown]
  - Cardiac disorder [Unknown]
  - Arrhythmia [Unknown]
